FAERS Safety Report 6240559-5 (Version None)
Quarter: 2009Q2

REPORT INFORMATION
  Report Type: 
  Country: None (occurrence: None)
  Receive Date: 20090623
  Receipt Date: 20081020
  Transmission Date: 20091009
  Serious: No
  Sender: FDA-Public Use
  Company Number: US-ASTRAZENECA-2008UW20117

PATIENT
  Age: 72 Year
  Sex: Male
  Weight: 131.5 kg

DRUGS (3)
  1. PULMICORT RESPULES [Suspect]
     Indication: ASTHMA
     Route: 055
  2. ALBUTEROL [Concomitant]
  3. BROVANA [Concomitant]

REACTIONS (3)
  - FEELING HOT [None]
  - INCREASED UPPER AIRWAY SECRETION [None]
  - WHEEZING [None]
